FAERS Safety Report 25348556 (Version 2)
Quarter: 2025Q3

REPORT INFORMATION
  Report Type: Report from Study
  Country: US (occurrence: US)
  Receive Date: 20250522
  Receipt Date: 20250922
  Transmission Date: 20251020
  Serious: Yes (Hospitalization, Other)
  Sender: AMGEN
  Company Number: US-AMGEN-USASP2025097110

PATIENT
  Sex: Male

DRUGS (2)
  1. ACTIMMUNE [Suspect]
     Active Substance: INTERFERON GAMMA-1B
     Indication: Chronic granulomatous disease
     Route: 065
  2. ACTIMMUNE [Suspect]
     Active Substance: INTERFERON GAMMA-1B
     Indication: Neutrophil function disorder
     Dosage: UNK UNK, 3 TIMES/WK
     Route: 065
     Dates: start: 20250613

REACTIONS (4)
  - Infection [Unknown]
  - Pneumonia [Unknown]
  - Condition aggravated [Unknown]
  - Therapy interrupted [Unknown]
